FAERS Safety Report 4745497-2 (Version None)
Quarter: 2005Q3

REPORT INFORMATION
  Report Type: 
  Country: None (occurrence: None)
  Receive Date: 20050815
  Receipt Date: 20050511
  Transmission Date: 20060218
  Serious: Yes (Other)
  Sender: FDA-Public Use
  Company Number: US-MERCK-0505USA01795

PATIENT
  Age: 82 Year
  Sex: Male
  Weight: 78 kg

DRUGS (20)
  1. VIOXX [Suspect]
     Indication: SPINAL COLUMN STENOSIS
     Route: 065
  2. ALPHAGAN [Concomitant]
     Indication: GLAUCOMA
     Route: 065
  3. POTASSIUM (UNSPECIFIED) [Concomitant]
     Indication: SWELLING
     Route: 065
  4. PROSCAR [Concomitant]
     Indication: BENIGN PROSTATIC HYPERPLASIA
     Route: 048
  5. PREDNISONE [Concomitant]
     Route: 065
  6. LASIX [Concomitant]
     Indication: HYPERTENSION
     Route: 065
     Dates: start: 19950101
  7. LISINOPRIL [Concomitant]
     Indication: HYPERTENSION
     Route: 065
     Dates: start: 19960101
  8. CEPHALEXIN [Concomitant]
     Indication: INFECTION
     Route: 065
  9. DOXYCYCLINE [Concomitant]
     Route: 065
  10. DRITUSS DM [Concomitant]
     Indication: NASOPHARYNGITIS
     Route: 065
  11. DETROL [Concomitant]
     Indication: BLADDER DISORDER
     Route: 065
  12. AMOXICILLIN [Concomitant]
     Indication: NASOPHARYNGITIS
     Route: 065
  13. MECLIZINE [Concomitant]
     Indication: DIZZINESS
     Route: 065
  14. METOPROLOL [Concomitant]
     Route: 065
  15. LEVAQUIN [Concomitant]
     Route: 065
  16. ASPIRIN [Concomitant]
     Route: 065
     Dates: start: 19950101
  17. COSOPT [Concomitant]
     Route: 047
  18. VIOXX [Suspect]
     Indication: ARTHRITIS
     Route: 048
     Dates: start: 20020101, end: 20040101
  19. VIOXX [Suspect]
     Route: 048
     Dates: start: 20020101, end: 20040101
  20. VIOXX [Suspect]
     Route: 065

REACTIONS (4)
  - BALANCE DISORDER [None]
  - BASAL CELL CARCINOMA [None]
  - CARDIAC FAILURE CONGESTIVE [None]
  - MYOCARDIAL INFARCTION [None]
